FAERS Safety Report 4723641-0 (Version None)
Quarter: 2005Q3

REPORT INFORMATION
  Report Type: 
  Country: None (occurrence: None)
  Receive Date: 20050722
  Receipt Date: 20050712
  Transmission Date: 20060218
  Serious: Yes (Hospitalization, Other)
  Sender: FDA-Public Use
  Company Number: 05-07-1190

PATIENT
  Age: 43 Year
  Sex: Female

DRUGS (3)
  1. CIPROFLOXACIN [Suspect]
     Indication: ARTHROPOD BITE
  2. CEPHALEXIN [Concomitant]
  3. AMOXICILLIN [Concomitant]

REACTIONS (3)
  - CONFUSIONAL STATE [None]
  - DYSKINESIA [None]
  - GRAND MAL CONVULSION [None]
